FAERS Safety Report 25239263 (Version 1)
Quarter: 2025Q2

REPORT INFORMATION
  Report Type: Spontaneous
  Country: US (occurrence: None)
  Receive Date: 20250424
  Receipt Date: 20250424
  Transmission Date: 20250717
  Serious: Yes (Hospitalization)
  Sender: FDA-CTU
  Company Number: None

PATIENT
  Age: 34 Year
  Sex: Male

DRUGS (1)
  1. ZONISAMIDE [Suspect]
     Active Substance: ZONISAMIDE
     Indication: Pain
     Dosage: FREQUENCY : DAILY;?
     Route: 048
     Dates: start: 20250223, end: 20250224

REACTIONS (5)
  - Confusional state [None]
  - Delirium [None]
  - Angioedema [None]
  - Dysphagia [None]
  - Paraesthesia [None]

NARRATIVE: CASE EVENT DATE: 20250224
